FAERS Safety Report 8963433 (Version 1)
Quarter: 2012Q4

REPORT INFORMATION
  Report Type: 
  Country: CN (occurrence: CN)
  Receive Date: 20121213
  Receipt Date: 20121213
  Transmission Date: 20130627
  Serious: Yes (Other)
  Sender: FDA-Public Use
  Company Number: PHHY2012CN109895

PATIENT

DRUGS (1)
  1. LESCOL [Suspect]
     Indication: DYSLIPIDAEMIA
     Dosage: 40 mg, QD
     Route: 048
     Dates: start: 20110805, end: 20110826

REACTIONS (3)
  - Bone pain [Recovered/Resolved]
  - Myalgia [Recovered/Resolved]
  - Mobility decreased [Recovered/Resolved]
